FAERS Safety Report 10189241 (Version 1)
Quarter: 2014Q2

REPORT INFORMATION
  Report Type: Spontaneous
  Country: US (occurrence: None)
  Receive Date: 20140521
  Receipt Date: 20140521
  Transmission Date: 20141212
  Serious: Yes (Hospitalization, Disabling)
  Sender: FDA-Public Use
  Company Number: None

PATIENT
  Age: 65 Year
  Sex: Female
  Weight: 68.49 kg

DRUGS (1)
  1. PREDNISONE [Suspect]
     Indication: BRONCHITIS
     Dosage: 3 PILLS
     Route: 048
     Dates: start: 20130928, end: 20131004

REACTIONS (9)
  - Fatigue [None]
  - Dysphonia [None]
  - Crying [None]
  - Drug hypersensitivity [None]
  - Abasia [None]
  - Walking aid user [None]
  - Osteonecrosis [None]
  - Bone graft [None]
  - Pain in extremity [None]
